FAERS Safety Report 7527363-2 (Version None)
Quarter: 2011Q2

REPORT INFORMATION
  Report Type: 
  Country: None (occurrence: None)
  Receive Date: 20110602
  Receipt Date: 20110512
  Transmission Date: 20111010
  Serious: Yes (Death)
  Sender: FDA-Public Use
  Company Number: JPI-P-015055

PATIENT
  Age: 4 Decade
  Sex: Male

DRUGS (2)
  1. XYREM [Suspect]
     Indication: CATAPLEXY
     Dosage: 4.5 GM (2.25 GM, 2 IN 1 D), ORAL (4.5 GM FIRST DOSE/3 GM SECOND DOSE), ORAL
     Route: 048
     Dates: start: 20060929
  2. XYREM [Suspect]
     Indication: CATAPLEXY
     Dosage: 4.5 GM (2.25 GM, 2 IN 1 D), ORAL (4.5 GM FIRST DOSE/3 GM SECOND DOSE), ORAL
     Route: 048
     Dates: start: 20070301, end: 20070330

REACTIONS (1)
  - DEATH [None]
